FAERS Safety Report 8028034-9 (Version None)
Quarter: 2011Q4

REPORT INFORMATION
  Report Type: 
  Country: None (occurrence: None)
  Receive Date: 20111130
  Receipt Date: 20110727
  Transmission Date: 20120403
  Serious: Yes (Other)
  Sender: FDA-Public Use
  Company Number: US200906006025

PATIENT
  Age: 58 Year
  Sex: Male
  Weight: 77.1 kg

DRUGS (8)
  1. BYETTA [Suspect]
     Dates: start: 20060809, end: 20080218
  2. NORVASC [Concomitant]
  3. MORPHINE [Concomitant]
  4. HALCION [Concomitant]
  5. TRAZODONE HCL [Concomitant]
  6. PROMETHAZINE [Concomitant]
  7. EXENATIDE UNK STRENGTH PEN, DISPOSABLE DEVICE (EXENATIDE PEN (UNKNOWN [Concomitant]
  8. OXYCODONE HCL [Concomitant]

REACTIONS (2)
  - PANCREATITIS [None]
  - RENAL INJURY [None]
